FAERS Safety Report 17847413 (Version 1)
Quarter: 2020Q2

REPORT INFORMATION
  Report Type: Spontaneous
  Country: FR (occurrence: FR)
  Receive Date: 20200601
  Receipt Date: 20200601
  Transmission Date: 20200714
  Serious: Yes (Hospitalization)
  Sender: FDA-Public Use
  Company Number: FR-PFIZER INC-2020212015

PATIENT
  Age: 53 Year
  Sex: Female

DRUGS (1)
  1. CELEBREX [Suspect]
     Active Substance: CELECOXIB
     Indication: OSTEOARTHRITIS
     Dosage: 300 MG, 1X/DAY
     Route: 048
     Dates: end: 20200229

REACTIONS (2)
  - Oedema [Not Recovered/Not Resolved]
  - Purpura [Not Recovered/Not Resolved]

NARRATIVE: CASE EVENT DATE: 202002
